FAERS Safety Report 20897777 (Version 1)
Quarter: 2022Q2

REPORT INFORMATION
  Report Type: Spontaneous
  Country: IR (occurrence: IR)
  Receive Date: 20220531
  Receipt Date: 20220531
  Transmission Date: 20220721
  Serious: Yes (Death, Hospitalization)
  Sender: FDA-Public Use
  Company Number: IR-BAUSCH-BL-2022-013028

PATIENT
  Age: 28 Year
  Sex: Male

DRUGS (2)
  1. DEXAMETHASONE [Suspect]
     Active Substance: DEXAMETHASONE
     Indication: Muscle mass
     Dosage: PROLONGED INJECTIONS OF DEXAMETHASONE TO INCREASE MUSCLE MASS
     Route: 065
  2. DEXAMETHASONE [Suspect]
     Active Substance: DEXAMETHASONE
     Indication: COVID-19 pneumonia
     Route: 042

REACTIONS (5)
  - Acute respiratory distress syndrome [Fatal]
  - Pneumothorax [Fatal]
  - Subcutaneous emphysema [Fatal]
  - Pneumomediastinum [Fatal]
  - COVID-19 pneumonia [Unknown]
